FAERS Safety Report 10360693 (Version 1)
Quarter: 2014Q3

REPORT INFORMATION
  Report Type: Spontaneous
  Country: US (occurrence: US)
  Receive Date: 20140804
  Receipt Date: 20140804
  Transmission Date: 20150326
  Serious: Yes (Other)
  Sender: FDA-Public Use
  Company Number: US-TEVA-498199USA

PATIENT
  Age: 61 Year
  Sex: Female

DRUGS (1)
  1. COPAXONE [Suspect]
     Active Substance: GLATIRAMER ACETATE
     Indication: MULTIPLE SCLEROSIS
     Dates: start: 20090401

REACTIONS (6)
  - Fall [Unknown]
  - Multiple sclerosis relapse [Unknown]
  - Limb discomfort [Unknown]
  - Ankle fracture [Unknown]
  - Mental impairment [Unknown]
  - Mobility decreased [Unknown]

NARRATIVE: CASE EVENT DATE: 201404
